FAERS Safety Report 11239053 (Version 3)
Quarter: 2015Q3

REPORT INFORMATION
  Report Type: Spontaneous
  Country: US (occurrence: US)
  Receive Date: 20150706
  Receipt Date: 20150910
  Transmission Date: 20151125
  Serious: Yes (Hospitalization)
  Sender: FDA-Public Use
  Company Number: US-BAYER-2015-367541

PATIENT
  Age: 34 Year
  Sex: Female
  Weight: 58.96 kg

DRUGS (1)
  1. MIRENA [Suspect]
     Active Substance: LEVONORGESTREL
     Indication: CONTRACEPTION
     Dosage: 20 MCG/24HR, CONT
     Route: 015
     Dates: start: 201002, end: 20101008

REACTIONS (7)
  - Autoimmune disorder [None]
  - Device issue [None]
  - Injury [None]
  - Embedded device [None]
  - Genital haemorrhage [None]
  - Pelvic pain [None]
  - Uterine scar [None]

NARRATIVE: CASE EVENT DATE: 201002
